FAERS Safety Report 5409440-5 (Version None)
Quarter: 2007Q3

REPORT INFORMATION
  Report Type: 
  Country: None (occurrence: None)
  Receive Date: 20070807
  Receipt Date: 20070807
  Transmission Date: 20080115
  Serious: Yes (Hospitalization)
  Sender: FDA-Public Use
  Company Number: None

PATIENT
  Age: 58 Year
  Sex: Male

DRUGS (2)
  1. ASPIRIN [Suspect]
     Dosage: 80MG  EVERY DAY  PO
     Route: 048
     Dates: start: 20060401
  2. MELOXICAM [Suspect]
     Dosage: 15MG EVERY DAY OTHER
     Route: 050
     Dates: start: 20070401

REACTIONS (2)
  - DUODENAL ULCER [None]
  - GASTROINTESTINAL HAEMORRHAGE [None]
